FAERS Safety Report 10263201 (Version 2)
Quarter: 2014Q2

REPORT INFORMATION
  Report Type: Report from Study
  Country: US (occurrence: US)
  Receive Date: 20140626
  Receipt Date: 20140626
  Transmission Date: 20141212
  Serious: Yes (Death, Hospitalization)
  Sender: FDA-Public Use
  Company Number: US-MYLANLABS-2014S1006786

PATIENT
  Age: 35 Year
  Sex: Male

DRUGS (4)
  1. CLOZAPINE TABLETS [Suspect]
     Indication: MENTAL RETARDATION
     Route: 048
     Dates: end: 20140315
  2. CLOZAPINE TABLETS [Suspect]
     Indication: OFF LABEL USE
     Route: 048
     Dates: end: 20140315
  3. CLOZAPINE TABLETS [Suspect]
     Indication: MENTAL RETARDATION
     Route: 048
     Dates: end: 20140315
  4. CLOZAPINE TABLETS [Suspect]
     Indication: OFF LABEL USE
     Route: 048
     Dates: end: 20140315

REACTIONS (3)
  - Respiratory failure [Fatal]
  - Small intestinal obstruction [Fatal]
  - Pneumonia [Fatal]
